FAERS Safety Report 7350431-5 (Version None)
Quarter: 2011Q1

REPORT INFORMATION
  Report Type: 
  Country: None (occurrence: None)
  Receive Date: 20110314
  Receipt Date: 20110216
  Transmission Date: 20110831
  Serious: No
  Sender: FDA-Public Use
  Company Number: US-B.I. PHARMACEUTICALS,INC./RIDGEFIELD-2011-BP-06051BP

PATIENT
  Age: 75 Year
  Sex: Female

DRUGS (2)
  1. METHOTREXATE [Concomitant]
     Indication: RHEUMATOID ARTHRITIS
  2. SPIRIVA [Suspect]
     Dosage: 18 MCG
     Route: 055
     Dates: start: 20100101

REACTIONS (8)
  - RHINORRHOEA [None]
  - DYSPHONIA [None]
  - DIZZINESS [None]
  - ABNORMAL FAECES [None]
  - MIDDLE INSOMNIA [None]
  - EYE IRRITATION [None]
  - COUGH [None]
  - HOT FLUSH [None]
